FAERS Safety Report 18385852 (Version 2)
Quarter: 2020Q4

REPORT INFORMATION
  Report Type: Spontaneous
  Country: US (occurrence: US)
  Receive Date: 20201015
  Receipt Date: 20201130
  Transmission Date: 20210114
  Serious: Yes (Life-Threatening, Other)
  Sender: FDA-Public Use
  Company Number: US-DRREDDYS-USA/USA/20/0128039

PATIENT
  Age: 29 Year
  Sex: Male

DRUGS (4)
  1. DAPTOMYCIN FOR INJECTION [Suspect]
     Active Substance: DAPTOMYCIN
     Indication: STAPHYLOCOCCAL INFECTION
     Dosage: (450MG ONCE ON DAY 1 AND 650MG ONCE ON DAY 3)
  2. NOREPINEPHRINE. [Concomitant]
     Active Substance: NOREPINEPHRINE
     Indication: PRODUCT USED FOR UNKNOWN INDICATION
     Dosage: 1.2MCG/KG/MIN
     Route: 065
  3. DAPTOMYCIN FOR INJECTION [Suspect]
     Active Substance: DAPTOMYCIN
     Indication: SEPTIC SHOCK
  4. CEFEPIME [Concomitant]
     Active Substance: CEFEPIME HYDROCHLORIDE
     Indication: PRODUCT USED FOR UNKNOWN INDICATION
     Route: 065

REACTIONS (1)
  - Blood creatine phosphokinase increased [Recovered/Resolved]
